FAERS Safety Report 10029509 (Version 1)
Quarter: 2014Q1

REPORT INFORMATION
  Report Type: Spontaneous
  Country: US (occurrence: None)
  Receive Date: 20140320
  Receipt Date: 20140320
  Transmission Date: 20141002
  Serious: Yes (Other)
  Sender: FDA-Public Use
  Company Number: None

PATIENT
  Age: 68 Year
  Sex: Female
  Weight: 81.65 kg

DRUGS (9)
  1. APRISO [Suspect]
     Indication: DRUG THERAPY
     Dosage: 0.375G 2 CAPS TWICE DAILY ORALLY
     Route: 048
  2. AGGRENOX [Concomitant]
  3. LISINOPRIL HCTZ [Concomitant]
  4. VIIBRYD [Concomitant]
  5. PRAVASTATIN [Concomitant]
  6. TRAZODONE [Concomitant]
  7. BUDESONIDE [Concomitant]
  8. VITAMIN D3 [Concomitant]
  9. CRANBERRY [Concomitant]

REACTIONS (2)
  - Feeling abnormal [None]
  - Hypertension [None]
